FAERS Safety Report 8383925-4 (Version None)
Quarter: 2012Q2

REPORT INFORMATION
  Report Type: 
  Country: None (occurrence: None)
  Receive Date: 20120524
  Receipt Date: 20120509
  Transmission Date: 20120825
  Serious: Yes (Hospitalization, Other)
  Sender: FDA-Public Use
  Company Number: US-JUTA GMBH-2012-08520

PATIENT
  Age: 54 Year
  Sex: Male

DRUGS (1)
  1. MORPHINE SULFATE [Suspect]
     Indication: PRODUCT USED FOR UNKNOWN INDICATION
     Dosage: UNK
     Route: 065

REACTIONS (4)
  - UNRESPONSIVE TO STIMULI [None]
  - CONFUSIONAL STATE [None]
  - ACCIDENTAL OVERDOSE [None]
  - LEUKOENCEPHALOPATHY [None]
